FAERS Safety Report 12394113 (Version 2)
Quarter: 2016Q2

REPORT INFORMATION
  Report Type: Spontaneous
  Country: IT (occurrence: IT)
  Receive Date: 20160523
  Receipt Date: 20160620
  Transmission Date: 20160815
  Serious: Yes (Other)
  Sender: FDA-Public Use
  Company Number: IT-PFIZER INC-2016259685

PATIENT
  Age: 71 Year
  Sex: Female
  Weight: 66 kg

DRUGS (6)
  1. DECADRON [Concomitant]
     Active Substance: DEXAMETHASONE
     Indication: INFLAMMATION
     Dosage: 20 MG, UNK
     Route: 042
     Dates: start: 20150114, end: 20150727
  2. LANSOPRAZOLE. [Concomitant]
     Active Substance: LANSOPRAZOLE
     Dosage: 30 MG, UNK
     Route: 048
  3. CARBOPLATIN. [Suspect]
     Active Substance: CARBOPLATIN
     Indication: OVARIAN CANCER
     Dosage: 450 MG, CYCLIC
     Route: 042
     Dates: start: 20150114
  4. ZOFRAN [Concomitant]
     Active Substance: ONDANSETRON HYDROCHLORIDE
     Indication: PROPHYLAXIS OF NAUSEA AND VOMITING
     Dosage: 8 MG, UNK
     Route: 042
     Dates: start: 20150114, end: 20150727
  5. CLEXANE [Concomitant]
     Active Substance: ENOXAPARIN SODIUM
     Dosage: 4000 IU, UNK
     Route: 058
  6. TENORMIN [Concomitant]
     Active Substance: ATENOLOL
     Dosage: 100 MG, UNK
     Route: 048

REACTIONS (1)
  - Venous thrombosis [Recovered/Resolved]

NARRATIVE: CASE EVENT DATE: 20150311
